FAERS Safety Report 25587304 (Version 1)
Quarter: 2025Q3

REPORT INFORMATION
  Report Type: Spontaneous
  Country: EU (occurrence: EU)
  Receive Date: 20250721
  Receipt Date: 20250721
  Transmission Date: 20251021
  Serious: Yes (Hospitalization)
  Sender: ETHYPHARM
  Company Number: None

PATIENT
  Age: 45 Year
  Sex: Female

DRUGS (1)
  1. BUPRENORPHINE [Suspect]
     Active Substance: BUPRENORPHINE
     Indication: Product use in unapproved indication

REACTIONS (5)
  - Drug use disorder [Recovering/Resolving]
  - Injection site infection [Recovering/Resolving]
  - Intervertebral discitis [Recovering/Resolving]
  - Intentional product use issue [Recovering/Resolving]
  - Product use in unapproved indication [Recovering/Resolving]
